FAERS Safety Report 16640685 (Version 1)
Quarter: 2019Q3

REPORT INFORMATION
  Report Type: Spontaneous
  Country: US (occurrence: US)
  Receive Date: 20190729
  Receipt Date: 20190729
  Transmission Date: 20191004
  Serious: Yes (Other)
  Sender: FDA-Public Use
  Company Number: US-STRIDES ARCOLAB LIMITED-2018SP008575

PATIENT
  Sex: Female

DRUGS (6)
  1. RITUXIMAB. [Suspect]
     Active Substance: RITUXIMAB
     Indication: LUPUS NEPHRITIS
     Dosage: UNK
     Route: 065
  2. MYCOPHENOLATE MOFETIL. [Suspect]
     Active Substance: MYCOPHENOLATE MOFETIL
     Indication: LUPUS NEPHRITIS
     Dosage: UNK
     Route: 065
  3. CYCLOSPORIN [Concomitant]
     Active Substance: CYCLOSPORINE
     Indication: LUPUS NEPHRITIS
     Dosage: UNK
     Route: 065
  4. AZATHIOPRINE. [Suspect]
     Active Substance: AZATHIOPRINE
     Indication: LUPUS NEPHRITIS
     Dosage: UNK
     Route: 065
  5. TACROLIMUS. [Suspect]
     Active Substance: TACROLIMUS
     Indication: LUPUS NEPHRITIS
     Dosage: UNK
     Route: 065
  6. BELIMUMAB [Concomitant]
     Active Substance: BELIMUMAB
     Indication: LUPUS NEPHRITIS
     Dosage: UNK
     Route: 065

REACTIONS (3)
  - Pancreatitis [Unknown]
  - Off label use [None]
  - Drug ineffective for unapproved indication [Unknown]
